FAERS Safety Report 15130828 (Version 5)
Quarter: 2019Q2

REPORT INFORMATION
  Report Type: Report from Study
  Country: PL (occurrence: PL)
  Receive Date: 20180711
  Receipt Date: 20190429
  Transmission Date: 20190711
  Serious: Yes (Hospitalization)
  Sender: FDA-Public Use
  Company Number: PL-ROCHE-2150438

PATIENT
  Age: 50 Year
  Sex: Female
  Weight: 67 kg

DRUGS (5)
  1. DICLOFENAC [Concomitant]
     Active Substance: DICLOFENAC
     Indication: ARTHRALGIA
     Route: 065
     Dates: start: 20180427
  2. CEFUROXIME. [Concomitant]
     Active Substance: CEFUROXIME
     Indication: INFECTION
     Route: 065
     Dates: start: 20180702, end: 20180702
  3. VEMURAFENIB. [Suspect]
     Active Substance: VEMURAFENIB
     Indication: MALIGNANT MELANOMA
     Dosage: DATE OF MOST RECENT DOSE (8 TABLETS) OF VEMURAFENIB PRIOR TO THE ONSET OF MOTOR APHASIA LIMITED CONT
     Route: 048
     Dates: start: 20180407
  4. PLACEBO [Suspect]
     Active Substance: UNSPECIFIED INGREDIENT
     Indication: MALIGNANT MELANOMA
     Dosage: MOST RECENT DOSE: 29/JUN/2018
     Route: 042
     Dates: start: 20180504
  5. COBIMETINIB. [Suspect]
     Active Substance: COBIMETINIB
     Indication: MALIGNANT MELANOMA
     Dosage: DATE OF MOST RECENT DOSE (60 MG) OF COBIMETINIB PRIOR TO THE ONSET OF MOTOR APHASIA LIMITED CONTACT:
     Route: 048
     Dates: start: 20180406

REACTIONS (1)
  - Aphasia [Recovered/Resolved]

NARRATIVE: CASE EVENT DATE: 20180703
